FAERS Safety Report 8485338-3 (Version None)
Quarter: 2012Q3

REPORT INFORMATION
  Report Type: 
  Country: None (occurrence: None)
  Receive Date: 20120703
  Receipt Date: 20120702
  Transmission Date: 20120928
  Serious: Yes (Other)
  Sender: FDA-Public Use
  Company Number: US-ROCHE-1078099

PATIENT
  Sex: Male

DRUGS (7)
  1. RIBASPHERE [Suspect]
     Indication: HEPATITIS C
     Dosage: IN DIVIDED DOSES
     Route: 048
  2. OMEPRAZOLE [Concomitant]
     Indication: GASTROOESOPHAGEAL REFLUX DISEASE
     Route: 048
  3. PEGASYS [Suspect]
     Indication: HEPATITIS C
     Route: 058
     Dates: start: 20120208
  4. LISINOPRIL [Concomitant]
     Indication: HYPERTENSION
     Route: 048
  5. PROPRANOLOL [Concomitant]
     Indication: HYPERTENSION
     Route: 048
  6. BOCEPREVIR [Suspect]
     Indication: HEPATITIS C
     Route: 048
     Dates: start: 20120307
  7. RIBASPHERE [Suspect]
     Route: 048
     Dates: start: 20120208

REACTIONS (7)
  - DRUG DOSE OMISSION [None]
  - BLOOD PRESSURE DECREASED [None]
  - PHOTOPHOBIA [None]
  - EYE HAEMORRHAGE [None]
  - FEELING ABNORMAL [None]
  - VERTIGO [None]
  - ANAEMIA [None]
